FAERS Safety Report 13125247 (Version 1)
Quarter: 2017Q1

REPORT INFORMATION
  Report Type: Spontaneous
  Country: US (occurrence: US)
  Receive Date: 20170117
  Receipt Date: 20170117
  Transmission Date: 20170428
  Serious: Yes (Life-Threatening, Hospitalization)
  Sender: FDA-Public Use
  Company Number: None

PATIENT
  Age: 62 Year
  Sex: Female
  Weight: 85 kg

DRUGS (2)
  1. ROPIVACAINE [Suspect]
     Active Substance: ROPIVACAINE
     Indication: SURGERY
     Route: 058
     Dates: start: 20160912, end: 20160912
  2. PROPOFOL. [Suspect]
     Active Substance: PROPOFOL
     Indication: SURGERY
     Dates: start: 20160912, end: 20160912

REACTIONS (4)
  - Anaphylactic reaction [None]
  - Toxicity to various agents [None]
  - Acute myocardial infarction [None]
  - Hypotension [None]

NARRATIVE: CASE EVENT DATE: 20160912
